FAERS Safety Report 5928817-2 (Version None)
Quarter: 2008Q4

REPORT INFORMATION
  Report Type: 
  Country: None (occurrence: None)
  Receive Date: 20081024
  Receipt Date: 20081015
  Transmission Date: 20090506
  Serious: Yes (Hospitalization, Other)
  Sender: FDA-Public Use
  Company Number: US-BAYER-200834451NA

PATIENT
  Age: 52 Year
  Sex: Female

DRUGS (9)
  1. BETASERON [Suspect]
     Indication: RELAPSING-REMITTING MULTIPLE SCLEROSIS
     Dosage: TOTAL DAILY DOSE: 8 MIU
     Route: 058
     Dates: start: 19971105, end: 20040115
  2. ACTONEL [Concomitant]
  3. PROZAC [Concomitant]
     Indication: DEPRESSION
     Dates: start: 19890101
  4. BACLOFEN [Concomitant]
  5. DITROPAN [Concomitant]
  6. VITAMINS [Concomitant]
  7. STEROIDS [Concomitant]
  8. COUMADIN [Concomitant]
     Indication: DEEP VEIN THROMBOSIS
  9. TRILEPTAL [Concomitant]

REACTIONS (13)
  - CATATONIA [None]
  - DEEP VEIN THROMBOSIS [None]
  - DEPRESSION [None]
  - DRUG INEFFECTIVE [None]
  - FALL [None]
  - HYDROCEPHALUS [None]
  - HYPOPHAGIA [None]
  - MULTIPLE SCLEROSIS [None]
  - PNEUMONIA [None]
  - SWELLING [None]
  - TRIGEMINAL NEURALGIA [None]
  - UNEVALUABLE EVENT [None]
  - UPPER LIMB FRACTURE [None]
